FAERS Safety Report 26205940 (Version 1)
Quarter: 2025Q4

REPORT INFORMATION
  Report Type: Report from Study
  Country: US (occurrence: None)
  Receive Date: 20251229
  Receipt Date: 20251229
  Transmission Date: 20260118
  Serious: Yes (Hospitalization, Other)
  Sender: UCB
  Company Number: UG-069-000032482

PATIENT
  Age: 79 Year

DRUGS (1)
  1. BIMEKIZUMAB [Suspect]
     Active Substance: BIMEKIZUMAB
     Indication: Hidradenitis
     Dosage: 320 MILLIGRAM, EV 2 WEEKS(QOW)

REACTIONS (3)
  - Urinary tract infection [Recovering/Resolving]
  - Atrial fibrillation [Recovering/Resolving]
  - Therapeutic product effect incomplete [Unknown]
